FAERS Safety Report 26084948 (Version 2)
Quarter: 2025Q4

REPORT INFORMATION
  Report Type: Spontaneous
  Country: EU (occurrence: EU)
  Receive Date: 20251125
  Receipt Date: 20251201
  Transmission Date: 20260117
  Serious: Yes (Death, Hospitalization)
  Sender: BIOGEN
  Company Number: EU-BIOGEN-2092076

PATIENT
  Age: 75 Year
  Sex: Male

DRUGS (5)
  1. TOFERSEN [Suspect]
     Active Substance: TOFERSEN
     Indication: Amyotrophic lateral sclerosis
     Dates: start: 20220122, end: 20251029
  2. RILUZOLE [Concomitant]
     Active Substance: RILUZOLE
     Indication: Product used for unknown indication
  3. Normast [Concomitant]
     Indication: Product used for unknown indication
  4. GABAPENTIN [Concomitant]
     Active Substance: GABAPENTIN
     Indication: Product used for unknown indication
  5. PRADAXA [Concomitant]
     Active Substance: DABIGATRAN ETEXILATE MESYLATE
     Indication: Product used for unknown indication

REACTIONS (3)
  - Septic shock [Fatal]
  - Hyponatraemia [Fatal]
  - Sepsis [Fatal]

NARRATIVE: CASE EVENT DATE: 20250909
